FAERS Safety Report 7020311-3 (Version None)
Quarter: 2010Q3

REPORT INFORMATION
  Report Type: 
  Country: None (occurrence: None)
  Receive Date: 20100929
  Receipt Date: 20100916
  Transmission Date: 20110219
  Serious: Yes (Other)
  Sender: FDA-Public Use
  Company Number: JP-ELI_LILLY_AND_COMPANY-JP201007006601

PATIENT
  Sex: Female
  Weight: 47 kg

DRUGS (5)
  1. CYMBALTA [Suspect]
     Indication: GLOSSODYNIA
     Dosage: 20 MG, DAILY (1/D)
     Route: 048
     Dates: start: 20100521, end: 20100603
  2. CYMBALTA [Suspect]
     Dosage: 40 MG, DAILY (1/D)
     Route: 048
     Dates: start: 20100604, end: 20100702
  3. MEILAX [Concomitant]
     Indication: GLOSSODYNIA
     Dosage: 0.5 MG, DAILY (1/D)
     Route: 048
     Dates: start: 20091210, end: 20100702
  4. DOGMATYL [Concomitant]
     Indication: GLOSSODYNIA
     Dosage: 50 MG, 3/D
     Route: 048
     Dates: start: 20100226, end: 20100317
  5. DOGMATYL [Concomitant]
     Dosage: 50 MG, DAILY (1/D)
     Route: 048
     Dates: start: 20100318, end: 20100702

REACTIONS (2)
  - INTERSTITIAL LUNG DISEASE [None]
  - OFF LABEL USE [None]
